FAERS Safety Report 24579494 (Version 2)
Quarter: 2024Q4

REPORT INFORMATION
  Report Type: Report from Study
  Country: FR (occurrence: FR)
  Receive Date: 20241105
  Receipt Date: 20241220
  Transmission Date: 20250115
  Serious: Yes (Death, Other)
  Sender: AUROBINDO
  Company Number: FR-CHEPLA-2024012876

PATIENT
  Age: 33 Year
  Sex: Female

DRUGS (30)
  1. CARBOPLATIN [Suspect]
     Active Substance: CARBOPLATIN
     Indication: HER2 positive breast cancer
     Dosage: UNK (4 CYCLES)
     Route: 065
     Dates: start: 200801
  2. CARBOPLATIN [Suspect]
     Active Substance: CARBOPLATIN
     Indication: Metastasis
     Dosage: UNK
     Route: 065
     Dates: start: 200912
  3. CARBOPLATIN [Suspect]
     Active Substance: CARBOPLATIN
     Indication: Adenocarcinoma
  4. CAPECITABINE [Suspect]
     Active Substance: CAPECITABINE
     Indication: HER2 positive breast cancer
     Dosage: UNK
     Route: 065
     Dates: start: 200708
  5. CAPECITABINE [Suspect]
     Active Substance: CAPECITABINE
     Indication: Adenocarcinoma
  6. CAPECITABINE [Suspect]
     Active Substance: CAPECITABINE
     Indication: Metastasis
  7. DOCETAXEL [Suspect]
     Active Substance: DOCETAXEL
     Indication: HER2 positive breast cancer
     Dosage: UNK (SIX COURSES)
     Route: 065
     Dates: start: 200509
  8. DOCETAXEL [Suspect]
     Active Substance: DOCETAXEL
     Indication: Metastasis
     Dosage: UNK (4 CYCLES)
     Route: 065
     Dates: start: 200801
  9. DOCETAXEL [Suspect]
     Active Substance: DOCETAXEL
     Indication: Adenocarcinoma
  10. PACLITAXEL [Suspect]
     Active Substance: PACLITAXEL
     Indication: Chemotherapy
     Dosage: 90 MILLIGRAM/SQ. METER ON DAYS 1, 8 AND 15 EVERY 4 WEEKS
     Route: 065
     Dates: start: 200904
  11. PACLITAXEL [Suspect]
     Active Substance: PACLITAXEL
     Indication: HER2 positive breast cancer
  12. PACLITAXEL [Suspect]
     Active Substance: PACLITAXEL
     Indication: Metastasis
  13. PACLITAXEL [Suspect]
     Active Substance: PACLITAXEL
     Indication: Adenocarcinoma
  14. VINORELBINE [Suspect]
     Active Substance: VINORELBINE TARTRATE
     Indication: HER2 positive breast cancer
     Dosage: UNK
     Route: 065
     Dates: start: 200605
  15. VINORELBINE [Suspect]
     Active Substance: VINORELBINE TARTRATE
     Indication: Metastasis
     Dosage: UNK
     Route: 065
  16. VINORELBINE [Suspect]
     Active Substance: VINORELBINE TARTRATE
     Indication: Adenocarcinoma
  17. BEVACIZUMAB [Suspect]
     Active Substance: BEVACIZUMAB
     Indication: Chemotherapy
     Dosage: 10 MILLIGRAM/KILOGRAM ON DAYS 1 AND 15
     Route: 065
     Dates: start: 200904
  18. BEVACIZUMAB [Suspect]
     Active Substance: BEVACIZUMAB
     Indication: HER2 positive breast cancer
  19. BEVACIZUMAB [Suspect]
     Active Substance: BEVACIZUMAB
     Indication: Metastasis
  20. BEVACIZUMAB [Suspect]
     Active Substance: BEVACIZUMAB
     Indication: Adenocarcinoma
  21. CYCLOPHOSPHAMIDE [Suspect]
     Active Substance: CYCLOPHOSPHAMIDE
     Indication: HER2 positive breast cancer
     Dosage: UNK (SIX COURSES)
     Route: 065
     Dates: start: 200509
  22. CYCLOPHOSPHAMIDE [Suspect]
     Active Substance: CYCLOPHOSPHAMIDE
     Indication: Metastasis
     Dosage: UNK
     Route: 065
     Dates: start: 201006
  23. CYCLOPHOSPHAMIDE [Suspect]
     Active Substance: CYCLOPHOSPHAMIDE
     Indication: Adenocarcinoma
  24. LAPATINIB [Suspect]
     Active Substance: LAPATINIB
     Indication: HER2 positive breast cancer
     Dosage: UNK
     Route: 065
     Dates: start: 200708
  25. LAPATINIB [Suspect]
     Active Substance: LAPATINIB
     Indication: Adenocarcinoma
  26. LAPATINIB [Suspect]
     Active Substance: LAPATINIB
     Indication: Metastasis
  27. METHOTREXATE [Suspect]
     Active Substance: METHOTREXATE
     Indication: HER2 positive breast cancer
     Dosage: UNK
     Route: 065
     Dates: start: 201006
  28. TRASTUZUMAB [Suspect]
     Active Substance: TRASTUZUMAB
     Indication: HER2 positive breast cancer
     Dosage: UNK
     Route: 065
     Dates: start: 200605
  29. TRASTUZUMAB [Suspect]
     Active Substance: TRASTUZUMAB
     Indication: Metastasis
     Dosage: UNK
     Route: 065
     Dates: start: 200801
  30. TRASTUZUMAB [Suspect]
     Active Substance: TRASTUZUMAB
     Indication: Adenocarcinoma
     Dosage: UNK
     Route: 065
     Dates: start: 200912

REACTIONS (8)
  - Death [Fatal]
  - Neutropenia [Unknown]
  - Breast cancer recurrent [Recovered/Resolved]
  - Toxicity to various agents [Unknown]
  - Asthenia [Unknown]
  - Hypertension [Unknown]
  - Diarrhoea [Unknown]
  - Alopecia [Unknown]

NARRATIVE: CASE EVENT DATE: 20060501
